FAERS Safety Report 8091212-7 (Version None)
Quarter: 2012Q1

REPORT INFORMATION
  Report Type: 
  Country: None (occurrence: None)
  Receive Date: 20120131
  Receipt Date: 20120126
  Transmission Date: 20120608
  Serious: Yes (Hospitalization, Other)
  Sender: FDA-Public Use
  Company Number: GB-AMGEN-GBRSP2011063641

PATIENT
  Age: 40 Year
  Sex: Male
  Weight: 60 kg

DRUGS (9)
  1. NEUPOGEN [Suspect]
     Indication: PRODUCT USED FOR UNKNOWN INDICATION
     Dosage: UNK
  2. NEULASTA [Suspect]
     Indication: CHEMOTHERAPY
     Dosage: 6 MG, ONE TIME DOSE
     Dates: start: 20111027, end: 20111027
  3. PACLITAXEL [Concomitant]
     Indication: NEOPLASM MALIGNANT
  4. IFOSFAMIDE [Concomitant]
     Indication: SEMINOMA
     Dosage: 1.2 G/M2, QD
     Route: 042
     Dates: start: 20111022, end: 20111026
  5. IFOSFAMIDE [Concomitant]
     Indication: NEOPLASM MALIGNANT
  6. CISPLATIN [Concomitant]
     Indication: NEOPLASM MALIGNANT
  7. RASBURICASE [Concomitant]
     Indication: PROPHYLAXIS
     Dosage: UNK
     Route: 042
     Dates: start: 20111022, end: 20111028
  8. CISPLATIN [Concomitant]
     Indication: SEMINOMA
     Dosage: 20 MG/M2, QD
     Dates: start: 20111022, end: 20111026
  9. PACLITAXEL [Concomitant]
     Indication: SEMINOMA
     Dosage: 250 MG/M2, QD
     Route: 042
     Dates: start: 20111022, end: 20111023

REACTIONS (3)
  - NEUTROPENIA [None]
  - FEBRILE NEUTROPENIA [None]
  - DRUG INEFFECTIVE [None]
